FAERS Safety Report 9494054 (Version 1)
Quarter: 2013Q3

REPORT INFORMATION
  Report Type: Spontaneous
  Country: US (occurrence: None)
  Receive Date: 20130829
  Receipt Date: 20130829
  Transmission Date: 20140515
  Serious: Yes (Disabling)
  Sender: FDA-Public Use
  Company Number: None

PATIENT
  Age: 65 Year
  Sex: Male
  Weight: 95.26 kg

DRUGS (1)
  1. FOSAMAX [Suspect]
     Indication: OSTEOPENIA
     Dosage: 1 PILL  TAKEN BY MOUTH
     Route: 048
     Dates: start: 20130115, end: 20130531

REACTIONS (3)
  - Arthralgia [None]
  - Groin pain [None]
  - Musculoskeletal pain [None]
